FAERS Safety Report 7480814-4 (Version None)
Quarter: 2011Q2

REPORT INFORMATION
  Report Type: 
  Country: None (occurrence: None)
  Receive Date: 20110516
  Receipt Date: 20110502
  Transmission Date: 20111010
  Serious: Yes (Other)
  Sender: FDA-Public Use
  Company Number: DE-JNJFOC-20110401436

PATIENT
  Age: 24 Year
  Sex: Female

DRUGS (6)
  1. SULFASALAZINE [Concomitant]
     Indication: CROHN'S DISEASE
     Dates: start: 20110106
  2. PREDNISOLONE [Concomitant]
     Indication: PREMEDICATION
     Route: 042
     Dates: start: 20110123
  3. REMICADE [Suspect]
     Route: 042
     Dates: end: 20051001
  4. REMICADE [Suspect]
     Route: 042
     Dates: start: 20110123
  5. REMICADE [Suspect]
     Indication: CROHN'S DISEASE
     Route: 042
     Dates: start: 20110211
  6. PREDNISOLONE [Concomitant]
     Route: 042
     Dates: start: 20110211

REACTIONS (3)
  - INFUSION RELATED REACTION [None]
  - HYPERSENSITIVITY [None]
  - LOSS OF CONSCIOUSNESS [None]
